FAERS Safety Report 13626383 (Version 1)
Quarter: 2017Q2

REPORT INFORMATION
  Report Type: Spontaneous
  Country: FR (occurrence: FR)
  Receive Date: 20170608
  Receipt Date: 20170608
  Transmission Date: 20170830
  Serious: Yes (Hospitalization, Other)
  Sender: FDA-Public Use
  Company Number: FR-GLAXOSMITHKLINE-FR2017GSK087280

PATIENT
  Age: 56 Year
  Sex: Female

DRUGS (11)
  1. CANDESARTAN. [Concomitant]
     Active Substance: CANDESARTAN
  2. SINGULAIR [Concomitant]
     Active Substance: MONTELUKAST SODIUM
  3. VOLTAREN [Suspect]
     Active Substance: DICLOFENAC SODIUM
     Indication: ARTHRALGIA
     Dosage: UNK
     Route: 048
     Dates: start: 201612
  4. SKENAN [Concomitant]
     Active Substance: MORPHINE SULFATE
  5. LEXOMIL [Concomitant]
     Active Substance: BROMAZEPAM
  6. SYMBICORT [Concomitant]
     Active Substance: BUDESONIDE\FORMOTEROL FUMARATE DIHYDRATE
  7. NEXIUM [Concomitant]
     Active Substance: ESOMEPRAZOLE MAGNESIUM
  8. ACUPAN [Concomitant]
     Active Substance: NEFOPAM HYDROCHLORIDE
  9. BRICANYL [Concomitant]
     Active Substance: TERBUTALINE SULFATE
  10. EFFEXOR [Concomitant]
     Active Substance: VENLAFAXINE HYDROCHLORIDE
  11. LYRICA [Concomitant]
     Active Substance: PREGABALIN

REACTIONS (2)
  - Abdominal pain [Recovered/Resolved]
  - Colitis ulcerative [Recovering/Resolving]

NARRATIVE: CASE EVENT DATE: 20161220
